FAERS Safety Report 16936388 (Version 2)
Quarter: 2019Q4

REPORT INFORMATION
  Report Type: Spontaneous
  Country: JP (occurrence: JP)
  Receive Date: 20191018
  Receipt Date: 20191226
  Transmission Date: 20200122
  Serious: Yes (Hospitalization)
  Sender: FDA-Public Use
  Company Number: JP-JNJFOC-20191027298

PATIENT
  Age: 78 Year
  Sex: Male

DRUGS (9)
  1. BIO-THREE [Concomitant]
     Active Substance: HERBALS
     Indication: BEHCET^S SYNDROME
     Dosage: 3 DOSAGE FORM, TID
     Route: 048
     Dates: start: 20190405
  2. REBAMIPIDE [Concomitant]
     Active Substance: REBAMIPIDE
     Indication: BEHCET^S SYNDROME
     Dosage: 1 DOSAGE FORM, TID
     Route: 048
     Dates: start: 20190405
  3. TAKECAB [Concomitant]
     Active Substance: VONOPRAZAN FUMURATE
     Indication: BEHCET^S SYNDROME
     Dosage: 1 DOSAGE FORM, QD
     Route: 048
     Dates: start: 20190405
  4. CALONAL [Concomitant]
     Active Substance: ACETAMINOPHEN
     Indication: BEHCET^S SYNDROME
     Dosage: 400 MILLIGRAM, TID
     Route: 048
     Dates: start: 20190405
  5. SELBEX [Concomitant]
     Active Substance: TEPRENONE
     Indication: BEHCET^S SYNDROME
     Dosage: 0.5 GRAM, TID
     Route: 048
     Dates: start: 20190405
  6. REMICADE [Suspect]
     Active Substance: INFLIXIMAB
     Dosage: 5 MILLIGRAM/KILOGRAM, QD
     Route: 042
     Dates: start: 20190517
  7. REMICADE [Suspect]
     Active Substance: INFLIXIMAB
     Indication: BEHCET^S SYNDROME
     Route: 042
     Dates: start: 20190405
  8. REMICADE [Suspect]
     Active Substance: INFLIXIMAB
     Route: 042
     Dates: start: 20190920
  9. COLCHICINE. [Concomitant]
     Active Substance: COLCHICINE
     Indication: BEHCET^S SYNDROME
     Dosage: 0.5 MILLIGRAM, QD
     Route: 048
     Dates: start: 20190301, end: 20190412

REACTIONS (2)
  - Aspergillus infection [Recovering/Resolving]
  - Pneumonia fungal [Recovering/Resolving]

NARRATIVE: CASE EVENT DATE: 20190617
